FAERS Safety Report 15332005 (Version 1)
Quarter: 2018Q3

REPORT INFORMATION
  Report Type: Report from Study
  Country: JP (occurrence: JP)
  Receive Date: 20180829
  Receipt Date: 20180829
  Transmission Date: 20181010
  Serious: Yes (Other)
  Sender: FDA-Public Use
  Company Number: PHJP2018JP015393

PATIENT
  Age: 52 Year
  Sex: Male

DRUGS (14)
  1. UREPEARL [Concomitant]
     Active Substance: UREA
     Indication: PSORIASIS
     Dosage: UNK, PRN
     Route: 061
     Dates: end: 20170913
  2. PROPETO [Concomitant]
     Indication: PSORIASIS
     Dosage: UNK, PRN
     Route: 061
     Dates: start: 20170220
  3. COSENTYX [Suspect]
     Active Substance: SECUKINUMAB
     Dosage: 300 MG, UNK
     Route: 058
     Dates: start: 20170605
  4. PROTOPIC [Concomitant]
     Active Substance: TACROLIMUS
     Indication: PSORIASIS
     Dosage: Q.S., QD
     Route: 061
     Dates: start: 20170914
  5. COSENTYX [Suspect]
     Active Substance: SECUKINUMAB
     Dosage: UNK
  6. BONALFA [Concomitant]
     Indication: PSORIASIS
     Dosage: Q.S., QD
     Route: 061
     Dates: start: 20170914
  7. TALION [Concomitant]
     Active Substance: BEPOTASTINE
     Indication: PSORIASIS
     Dosage: 20 MG, PRN
     Route: 048
     Dates: start: 20170220, end: 20170913
  8. COSENTYX [Suspect]
     Active Substance: SECUKINUMAB
     Dosage: 300 MG, UNK
     Route: 058
     Dates: start: 20170315
  9. COSENTYX [Suspect]
     Active Substance: SECUKINUMAB
     Dosage: UNK
  10. COSENTYX [Suspect]
     Active Substance: SECUKINUMAB
     Indication: PSORIASIS
     Dosage: UNK
     Route: 058
     Dates: start: 20160801
  11. COSENTYX [Suspect]
     Active Substance: SECUKINUMAB
     Dosage: 300 MG, UNK
     Route: 058
     Dates: start: 20170914
  12. ALLELOCK [Concomitant]
     Active Substance: OLOPATADINE HYDROCHLORIDE
     Indication: PSORIASIS
     Dosage: 10 MG, PRN
     Route: 048
     Dates: start: 20170220, end: 20170913
  13. DOVOBET [Concomitant]
     Active Substance: BETAMETHASONE\CALCIPOTRIENE
     Indication: PSORIASIS
     Dosage: Q.S., QD
     Route: 061
     Dates: start: 20170914
  14. URINORM [Concomitant]
     Active Substance: BENZBROMARONE
     Indication: HYPERURICAEMIA
     Dosage: 50 MG, UNK
     Route: 048

REACTIONS (3)
  - Erysipelas [Recovered/Resolved]
  - Swelling face [Unknown]
  - Pyrexia [Unknown]

NARRATIVE: CASE EVENT DATE: 20170225
